FAERS Safety Report 9474058 (Version 2)
Quarter: 2013Q4

REPORT INFORMATION
  Report Type: Report from Study
  Country: AU (occurrence: AU)
  Receive Date: 20130823
  Receipt Date: 20131008
  Transmission Date: 20140711
  Serious: Yes (Hospitalization, Other)
  Sender: FDA-Public Use
  Company Number: PHHY2013AU091300

PATIENT
  Age: 37 Year
  Sex: Male

DRUGS (2)
  1. CLOZARIL [Suspect]
     Indication: SCHIZOPHRENIA, PARANOID TYPE
     Dosage: 300 MG, DAILY
     Route: 048
     Dates: start: 20101116
  2. CLOZARIL [Suspect]
     Dosage: UNK

REACTIONS (4)
  - Mental impairment [Recovering/Resolving]
  - Antipsychotic drug level decreased [Unknown]
  - Incorrect dose administered [Unknown]
  - Adverse drug reaction [Unknown]
